FAERS Safety Report 6599592-6 (Version None)
Quarter: 2010Q1

REPORT INFORMATION
  Report Type: 
  Country: None (occurrence: None)
  Receive Date: 20100224
  Receipt Date: 20100214
  Transmission Date: 20100710
  Serious: Yes (Other)
  Sender: FDA-Public Use
  Company Number: US-JNJFOC-20100108640

PATIENT
  Age: 15 Year
  Sex: Male
  Weight: 76.2 kg

DRUGS (6)
  1. EXTRA STRENGTH TYLENOL [Suspect]
     Indication: LOWER RESPIRATORY TRACT INFECTION
     Dosage: 500 MG EVERY 4-6 HOURS
     Route: 048
  2. EXTRA STRENGTH TYLENOL [Suspect]
     Indication: PYREXIA
     Dosage: 500 MG EVERY 4-6 HOURS
     Route: 048
  3. EXTRA STRENGTH TYLENOL [Suspect]
     Indication: OROPHARYNGEAL PAIN
     Dosage: 500 MG EVERY 4-6 HOURS
     Route: 048
  4. EXTRA STRENGTH TYLENOL [Suspect]
     Indication: SINUSITIS
     Dosage: 500 MG EVERY 4-6 HOURS
     Route: 048
  5. ZYRTEC [Concomitant]
  6. ZITHROMAX [Concomitant]

REACTIONS (7)
  - ABDOMINAL PAIN UPPER [None]
  - DIARRHOEA [None]
  - LETHARGY [None]
  - NAUSEA [None]
  - PRODUCT TASTE ABNORMAL [None]
  - SOMNOLENCE [None]
  - WEIGHT DECREASED [None]
